FAERS Safety Report 7343639-6 (Version None)
Quarter: 2011Q1

REPORT INFORMATION
  Report Type: 
  Country: None (occurrence: None)
  Receive Date: 20110310
  Receipt Date: 20100824
  Transmission Date: 20110831
  Serious: No
  Sender: FDA-Public Use
  Company Number: A0877448A

PATIENT
  Age: 60 Year
  Sex: Female

DRUGS (1)
  1. NICOTINE POLACRILEX [Suspect]

REACTIONS (6)
  - DRUG ADMINISTRATION ERROR [None]
  - TOOTH EXTRACTION [None]
  - TOOTH FRACTURE [None]
  - DENTAL IMPLANTATION [None]
  - INTENTIONAL DRUG MISUSE [None]
  - NICOTINE DEPENDENCE [None]
